FAERS Safety Report 10009734 (Version 1)
Quarter: 2014Q1

REPORT INFORMATION
  Report Type: Spontaneous
  Country: US (occurrence: US)
  Receive Date: 20140312
  Receipt Date: 20140312
  Transmission Date: 20141002
  Serious: No
  Sender: FDA-Public Use
  Company Number: US-INCYTE CORPORATION-2012IN002386

PATIENT
  Sex: Female

DRUGS (3)
  1. JAKAFI [Suspect]
     Indication: MYELOFIBROSIS
     Dosage: 10 MG, BID
     Route: 048
     Dates: start: 20120608
  2. HYPERTENSIVE MEDICATION [Concomitant]
  3. DRUG USED IN DIABETES [Concomitant]

REACTIONS (8)
  - Increased appetite [Unknown]
  - Blood glucose decreased [Unknown]
  - Blood pressure decreased [Unknown]
  - Salt craving [Unknown]
  - Feeling jittery [Unknown]
  - Splenomegaly [Not Recovered/Not Resolved]
  - Fatigue [Not Recovered/Not Resolved]
  - Weight increased [Unknown]
